FAERS Safety Report 8888394 (Version 3)
Quarter: 2013Q1

REPORT INFORMATION
  Report Type: Spontaneous
  Country: JP (occurrence: JP)
  Receive Date: 20121106
  Receipt Date: 20130225
  Transmission Date: 20140127
  Serious: Yes (Death, Other)
  Sender: FDA-Public Use
  Company Number: PHHY2012JP100988

PATIENT
  Age: 72 None
  Sex: Female

DRUGS (2)
  1. GLIVEC [Suspect]
     Indication: CHRONIC MYELOID LEUKAEMIA
     Dosage: 100 MG, DAILY
     Route: 048
     Dates: start: 20021025
  2. GLIVEC [Suspect]
     Dosage: 300 MG, DAILY
     Route: 048
     Dates: end: 20120330

REACTIONS (8)
  - Cardiac arrest [Fatal]
  - Myelodysplastic syndrome [Unknown]
  - Second primary malignancy [Unknown]
  - Glycosylated haemoglobin increased [Unknown]
  - Pruritus [Unknown]
  - Oedema [Unknown]
  - Platelet count decreased [Unknown]
  - Blood glucose increased [Unknown]
